FAERS Safety Report 18670206 (Version 2)
Quarter: 2021Q1

REPORT INFORMATION
  Report Type: Report from Study
  Country: US (occurrence: US)
  Receive Date: 20201228
  Receipt Date: 20210108
  Transmission Date: 20210419
  Serious: Yes (Death, Hospitalization, Other)
  Sender: FDA-Public Use
  Company Number: US-BRISTOL-MYERS SQUIBB COMPANY-BMS-2020-110457

PATIENT
  Age: 54 Year
  Sex: Male
  Weight: 95.2 kg

DRUGS (2)
  1. ENOXAPARIN [Concomitant]
     Active Substance: ENOXAPARIN
     Indication: ADVERSE EVENT
     Dosage: UNK
     Route: 065
  2. NIVOLUMAB [Suspect]
     Active Substance: NIVOLUMAB
     Indication: RENAL CELL CARCINOMA
     Dosage: 480 MILLIGRAM
     Route: 065
     Dates: start: 20201120, end: 20201215

REACTIONS (2)
  - Abdominal pain [Unknown]
  - Hepatitis [Fatal]

NARRATIVE: CASE EVENT DATE: 20201208
